FAERS Safety Report 6644034-5 (Version None)
Quarter: 2010Q1

REPORT INFORMATION
  Report Type: 
  Country: None (occurrence: None)
  Receive Date: 20100319
  Receipt Date: 20100319
  Transmission Date: 20100710
  Serious: Yes (Life-Threatening, Hospitalization)
  Sender: FDA-Public Use
  Company Number: None

PATIENT
  Age: 76 Year
  Sex: Male

DRUGS (1)
  1. AMBIEN [Suspect]
     Indication: SLEEP DISORDER THERAPY
     Dosage: 1 TABLET 1 PER NIGHT
     Dates: start: 20100221

REACTIONS (5)
  - CONTUSION [None]
  - FALL [None]
  - HEAD INJURY [None]
  - SKIN LACERATION [None]
  - SOMNAMBULISM [None]
